FAERS Safety Report 13817710 (Version 1)
Quarter: 2017Q3

REPORT INFORMATION
  Report Type: Spontaneous
  Country: US (occurrence: US)
  Receive Date: 20170731
  Receipt Date: 20170731
  Transmission Date: 20171127
  Serious: No
  Sender: FDA-Public Use
  Company Number: US-TEIKOKU PHARMA USA-TPU2017-00249

PATIENT
  Sex: Male
  Weight: 86.26 kg

DRUGS (2)
  1. OXYCODONE AND ACETAMINOPHEN [Concomitant]
     Active Substance: ACETAMINOPHEN\OXYCODONE HYDROCHLORIDE
     Dosage: 5 MG ONE DAILY?ROUND WHITE SCORED MYLAN
     Dates: start: 20170416
  2. LIDOCAINE PATCH [Suspect]
     Active Substance: LIDOCAINE
     Indication: CONTUSION
     Dosage: ONE PATCH UP TO 12 HOURS APPLIED TO RIBS
     Route: 061
     Dates: start: 20170419

REACTIONS (2)
  - Asthenia [Not Recovered/Not Resolved]
  - Drug ineffective for unapproved indication [Not Recovered/Not Resolved]
